FAERS Safety Report 5830320-5 (Version None)
Quarter: 2008Q3

REPORT INFORMATION
  Report Type: 
  Country: None (occurrence: None)
  Receive Date: 20080801
  Receipt Date: 20080724
  Transmission Date: 20090109
  Serious: Yes (Hospitalization, Other)
  Sender: FDA-Public Use
  Company Number: BR-ABBOTT-08P-020-0434974-00

PATIENT
  Sex: Female
  Weight: 55 kg

DRUGS (15)
  1. HUMIRA [Suspect]
     Indication: INTESTINAL FISTULA
     Route: 058
     Dates: start: 20071101
  2. HUMIRA [Suspect]
     Indication: CROHN'S DISEASE
     Route: 058
  3. HUMIRA [Suspect]
     Route: 058
     Dates: end: 20080129
  4. HUMIRA [Suspect]
     Route: 058
     Dates: start: 20080201, end: 20080313
  5. HUMIRA [Suspect]
     Dates: end: 20080601
  6. WARFARIN SODIUM [Concomitant]
     Indication: DEEP VEIN THROMBOSIS
  7. WARFARIN SODIUM [Concomitant]
     Indication: ANTICOAGULANT THERAPY
  8. PREDNISONE [Concomitant]
     Indication: DRUG USE FOR UNKNOWN INDICATION
  9. METRONIDASOLE [Concomitant]
     Indication: DRUG USE FOR UNKNOWN INDICATION
  10. PANTOPRAZOLE SODIUM [Concomitant]
     Indication: DRUG USE FOR UNKNOWN INDICATION
  11. AZATHIOPRINE [Concomitant]
     Indication: IMMUNOSUPPRESSANT DRUG THERAPY
     Route: 048
     Dates: start: 20060101
  12. MESALAMINE [Concomitant]
     Indication: DRUG USE FOR UNKNOWN INDICATION
  13. CORTICOIDS [Concomitant]
     Indication: DRUG USE FOR UNKNOWN INDICATION
  14. CLOXAZOLAM [Concomitant]
     Indication: SEDATIVE THERAPY
  15. UNKNOWN MAGISTRAL FORMULA [Concomitant]
     Indication: HYPERTENSION

REACTIONS (13)
  - ABDOMINAL INFECTION [None]
  - ADVERSE EVENT [None]
  - ATAXIA [None]
  - CROHN'S DISEASE [None]
  - DIZZINESS [None]
  - ENTEROCUTANEOUS FISTULA [None]
  - FREQUENT BOWEL MOVEMENTS [None]
  - GAIT DISTURBANCE [None]
  - GASTROINTESTINAL DISORDER [None]
  - NYSTAGMUS [None]
  - PARAESTHESIA [None]
  - SPEECH DISORDER [None]
  - VISION BLURRED [None]
